FAERS Safety Report 19238435 (Version 2)
Quarter: 2021Q2

REPORT INFORMATION
  Report Type: Spontaneous
  Country: US (occurrence: US)
  Receive Date: 20210510
  Receipt Date: 20210622
  Transmission Date: 20210717
  Serious: No
  Sender: FDA-Public Use
  Company Number: US-GLAXOSMITHKLINE-US2021095981

PATIENT
  Sex: Male

DRUGS (1)
  1. ANORO ELLIPTA [Suspect]
     Active Substance: UMECLIDINIUM BROMIDE\VILANTEROL TRIFENATATE
     Indication: PRODUCT USED FOR UNKNOWN INDICATION
     Dosage: 2 DF, 62.5/25MCG
     Route: 055

REACTIONS (8)
  - Product dose omission issue [Unknown]
  - Condition aggravated [Recovered/Resolved with Sequelae]
  - Product use in unapproved indication [Unknown]
  - Dysphonia [Recovered/Resolved with Sequelae]
  - Drug effective for unapproved indication [Unknown]
  - Cough [Recovered/Resolved with Sequelae]
  - Product complaint [Unknown]
  - Wrong technique in product usage process [Recovered/Resolved with Sequelae]
